FAERS Safety Report 6852650-0 (Version None)
Quarter: 2010Q3

REPORT INFORMATION
  Report Type: 
  Country: None (occurrence: None)
  Receive Date: 20100717
  Receipt Date: 20071120
  Transmission Date: 20110219
  Serious: No
  Sender: FDA-Public Use
  Company Number: US-PFIZER INC-2007099858

PATIENT
  Sex: Female
  Weight: 59 kg

DRUGS (6)
  1. CHANTIX [Suspect]
     Indication: SMOKING CESSATION THERAPY
     Dates: start: 20071112
  2. ATENOLOL [Concomitant]
  3. CRESTOR [Concomitant]
  4. COSOPT [Concomitant]
  5. ESTRADIOL [Concomitant]
  6. OPIOIDS [Concomitant]
     Indication: ANALGESIC THERAPY

REACTIONS (1)
  - RASH PAPULAR [None]
